FAERS Safety Report 15987749 (Version 1)
Quarter: 2019Q1

REPORT INFORMATION
  Report Type: Spontaneous
  Country: US (occurrence: US)
  Receive Date: 20190220
  Receipt Date: 20190220
  Transmission Date: 20190418
  Serious: Yes (Other)
  Sender: FDA-Public Use
  Company Number: US-GILEAD-2019-0391506

PATIENT
  Age: 72 Year
  Sex: Female
  Weight: 54.42 kg

DRUGS (3)
  1. YESCARTA [Suspect]
     Active Substance: AXICABTAGENE CILOLEUCEL
     Indication: DIFFUSE LARGE B-CELL LYMPHOMA
     Dosage: SINGLE
     Route: 042
     Dates: start: 20180606, end: 20180606
  2. SEPTRA DS [Concomitant]
     Active Substance: SULFAMETHOXAZOLE\TRIMETHOPRIM
     Dosage: UNK
  3. ACYCLOVIR [ACICLOVIR] [Concomitant]
     Active Substance: ACYCLOVIR
     Dosage: 400 MG, TID

REACTIONS (3)
  - Bone marrow disorder [Unknown]
  - Rash [Unknown]
  - Pneumocystis jirovecii pneumonia [Recovered/Resolved]

NARRATIVE: CASE EVENT DATE: 201809
